FAERS Safety Report 5402023-2 (Version None)
Quarter: 2007Q3

REPORT INFORMATION
  Report Type: 
  Country: None (occurrence: None)
  Receive Date: 20070726
  Receipt Date: 20070711
  Transmission Date: 20080115
  Serious: Yes (Other)
  Sender: FDA-Public Use
  Company Number: 2007001270

PATIENT
  Sex: Male

DRUGS (7)
  1. TARCEVA [Suspect]
     Dosage: 150 MG (QD), ORAL
     Route: 048
  2. ACETAMINOPHEN [Concomitant]
  3. TRAMADOL HCL [Concomitant]
  4. KONAKION [Concomitant]
  5. TIRODRIL (THIAMAZOLE) [Concomitant]
  6. OMEPRAZOLE [Concomitant]
  7. FORTECORTIN (DEXAMETHASONE) [Concomitant]

REACTIONS (4)
  - DYSPEPSIA [None]
  - DYSPHAGIA [None]
  - FAECES DISCOLOURED [None]
  - MUSCULOSKELETAL STIFFNESS [None]
